FAERS Safety Report 4853677-0 (Version None)
Quarter: 2005Q4

REPORT INFORMATION
  Report Type: 
  Country: None (occurrence: None)
  Receive Date: 20051212
  Receipt Date: 20051128
  Transmission Date: 20060501
  Serious: Yes (Death)
  Sender: FDA-Public Use
  Company Number: GXKR2005GB01776

PATIENT
  Age: 61 Year
  Sex: Male
  Weight: 75 kg

DRUGS (2)
  1. CITALOPRAM HYDROBROMIDE [Suspect]
     Indication: DEPRESSION
     Dosage: 10 MG, ORAL
     Route: 048
     Dates: start: 20041101, end: 20050122
  2. LAMOTRIGINE [Suspect]
     Indication: EPILEPSY
     Dosage: 100 MG, ORAL
     Route: 048
     Dates: start: 20041001, end: 20050122

REACTIONS (4)
  - ANTIDEPRESSANT DRUG LEVEL INCREASED [None]
  - DRUG INTERACTION [None]
  - EPILEPSY [None]
  - SUDDEN DEATH [None]
